FAERS Safety Report 20152308 (Version 3)
Quarter: 2022Q1

REPORT INFORMATION
  Report Type: Spontaneous
  Country: CO (occurrence: CO)
  Receive Date: 20211206
  Receipt Date: 20220316
  Transmission Date: 20220423
  Serious: Yes (Other)
  Sender: FDA-Public Use
  Company Number: CO-PFIZER INC-202101686632

PATIENT
  Age: 55 Year
  Sex: Female

DRUGS (1)
  1. LYRICA [Suspect]
     Active Substance: PREGABALIN
     Indication: Pain
     Dosage: UNK
     Route: 048
     Dates: start: 20210927

REACTIONS (7)
  - Asphyxia [Recovered/Resolved]
  - Influenza [Recovered/Resolved]
  - COVID-19 [Recovered/Resolved]
  - Pyrexia [Recovered/Resolved]
  - Anosmia [Recovered/Resolved]
  - Diarrhoea [Recovered/Resolved]
  - Vomiting [Recovered/Resolved]

NARRATIVE: CASE EVENT DATE: 20211101
